FAERS Safety Report 7416649-8 (Version None)
Quarter: 2011Q2

REPORT INFORMATION
  Report Type: 
  Country: None (occurrence: None)
  Receive Date: 20110415
  Receipt Date: 20110405
  Transmission Date: 20111010
  Serious: No
  Sender: FDA-Public Use
  Company Number: US-BIOGENIDEC-2011BI006317

PATIENT
  Age: 34 Year
  Sex: Female

DRUGS (1)
  1. TYSABRI [Suspect]
     Indication: MULTIPLE SCLEROSIS
     Route: 042
     Dates: start: 20101118

REACTIONS (8)
  - BALANCE DISORDER [None]
  - HYPOAESTHESIA FACIAL [None]
  - FATIGUE [None]
  - NEURALGIA [None]
  - HYPOAESTHESIA ORAL [None]
  - SENSATION OF HEAVINESS [None]
  - VISION BLURRED [None]
  - PARAESTHESIA ORAL [None]
